FAERS Safety Report 20608068 (Version 1)
Quarter: 2022Q1

REPORT INFORMATION
  Report Type: Other
  Country: PH (occurrence: None)
  Receive Date: 20220317
  Receipt Date: 20220317
  Transmission Date: 20220423
  Serious: Yes (Other)
  Sender: FDA-Public Use
  Company Number: PH-ROCHE-3045672

PATIENT
  Age: 51 Year
  Sex: Female

DRUGS (5)
  1. AVASTIN [Suspect]
     Active Substance: BEVACIZUMAB
     Indication: Cervix carcinoma
     Dosage: 100MG 2VIALS PER CYCLE, VILAS
     Route: 042
  2. MORPHINE [Concomitant]
     Active Substance: MORPHINE
     Dosage: INTERVAL 6 HOURS, 1 MORPHINE 10MG EVERY 6 HOURS (UNSPECIFIED ROUTE)
  3. URSODIOL [Concomitant]
     Active Substance: URSODIOL
     Dosage: URSOFALK 2 TIMES A DAY (UNSPECIFIED DOSE AND INTERVAL)
     Route: 048
  4. TRIMETAZIDINE [Concomitant]
     Active Substance: TRIMETAZIDINE
     Dosage: TRIMETAZIDINE 2 TIMES A DAY (UNSPECIFIED DOSE AND INTERVAL)
     Route: 048
  5. CLOPIDOGREL [Concomitant]
     Active Substance: CLOPIDOGREL BISULFATE
     Dosage: CLOPIDOGREL ONCE A DAY (UNSPECIFIED DOSE), INTERVAL 1 DAY
     Route: 048

REACTIONS (4)
  - Neoplasm progression [Unknown]
  - Weight increased [Unknown]
  - Dizziness [Recovering/Resolving]
  - Abdominal discomfort [Unknown]
